FAERS Safety Report 7210163-0 (Version None)
Quarter: 2011Q1

REPORT INFORMATION
  Report Type: 
  Country: None (occurrence: None)
  Receive Date: 20110105
  Receipt Date: 20101228
  Transmission Date: 20110831
  Serious: Yes (Hospitalization)
  Sender: FDA-Public Use
  Company Number: BE-BRISTOL-MYERS SQUIBB COMPANY-15469315

PATIENT
  Age: 61 Year
  Sex: Female
  Weight: 66 kg

DRUGS (4)
  1. CETUXIMAB [Suspect]
     Indication: NON-SMALL CELL LUNG CANCER
     Dosage: RECENT DOSE ON 20DEC10,INF-2.
     Route: 042
     Dates: start: 20101213
  2. CISPLATIN [Suspect]
     Indication: NON-SMALL CELL LUNG CANCER
     Dosage: NO OF INF-1.
     Route: 042
     Dates: start: 20101214
  3. GEMCITABINE [Suspect]
     Indication: NON-SMALL CELL LUNG CANCER
     Dosage: DAY 1 AND DAY 8 OF EACH 3-WEEK CYCLE.RECENT INF ON 20DEC10,NO OF INF-2.
     Route: 042
     Dates: start: 20101213
  4. CILENGITIDE [Suspect]
     Indication: NON-SMALL CELL LUNG CANCER
     Dosage: RECENT INF ON 23DEC2010,NO OF  INF-4.
     Route: 042
     Dates: start: 20101213

REACTIONS (1)
  - HYPOVOLAEMIC SHOCK [None]
